FAERS Safety Report 10694407 (Version 1)
Quarter: 2015Q1

REPORT INFORMATION
  Report Type: Spontaneous
  Country: FR (occurrence: FR)
  Receive Date: 20150107
  Receipt Date: 20150107
  Transmission Date: 20150721
  Serious: Yes (Hospitalization)
  Sender: FDA-Public Use
  Company Number: FR-PFIZER INC-2014362887

PATIENT
  Age: 51 Year
  Sex: Male

DRUGS (8)
  1. POLARAMINE [Suspect]
     Active Substance: DEXCHLORPHENIRAMINE MALEATE
     Dosage: UNK
     Route: 042
     Dates: start: 20141102, end: 20141102
  2. HYDROCHLOROTHIAZIDE. [Concomitant]
     Active Substance: HYDROCHLOROTHIAZIDE
  3. NEBIVOLOL [Concomitant]
     Active Substance: NEBIVOLOL
  4. LYRICA [Suspect]
     Active Substance: PREGABALIN
     Dosage: UNK
     Route: 048
     Dates: start: 20141102, end: 20141102
  5. PRIVIGEN [Suspect]
     Active Substance: HUMAN IMMUNOGLOBULIN G
     Indication: LICHEN MYXOEDEMATOSUS
     Dosage: 1 MG/KG, CYCLIC ON DAY 1 AND DAY 3
     Route: 042
     Dates: start: 20141031
  6. IRBESARTAN. [Concomitant]
     Active Substance: IRBESARTAN
  7. TANGANIL [Suspect]
     Active Substance: ACETYLLEUCINE
     Dosage: UNK
     Route: 042
     Dates: start: 20141102, end: 20141102
  8. CLAIRYG [Concomitant]
     Active Substance: HUMAN IMMUNOGLOBULIN G

REACTIONS (1)
  - Status epilepticus [Recovered/Resolved]

NARRATIVE: CASE EVENT DATE: 20141102
